FAERS Safety Report 7061259-8 (Version None)
Quarter: 2010Q4

REPORT INFORMATION
  Report Type: 
  Country: None (occurrence: None)
  Receive Date: 20101026
  Receipt Date: 20101018
  Transmission Date: 20110411
  Serious: No
  Sender: FDA-Public Use
  Company Number: US-PFIZER INC-2010132769

PATIENT
  Sex: Female
  Weight: 71.202 kg

DRUGS (4)
  1. GEODON [Suspect]
     Indication: PARANOIA
     Dosage: 160 MG, 2X/DAY
     Route: 048
  2. LITHIUM [Suspect]
     Indication: DEPRESSION
     Dosage: UNK
  3. WELLBUTRIN [Concomitant]
     Indication: DEPRESSION
     Dosage: UNK
  4. KLONOPIN [Concomitant]
     Indication: MOOD ALTERED
     Dosage: UNK

REACTIONS (5)
  - BLOOD OESTROGEN INCREASED [None]
  - FEELING ABNORMAL [None]
  - GALACTORRHOEA [None]
  - WEIGHT DECREASED [None]
  - WEIGHT INCREASED [None]
